FAERS Safety Report 13633501 (Version 1)
Quarter: 2017Q2

REPORT INFORMATION
  Report Type: Spontaneous
  Country: US (occurrence: US)
  Receive Date: 20170531
  Receipt Date: 20170531
  Transmission Date: 20170830
  Serious: No
  Sender: FDA-Public Use
  Company Number: US-ASTELLAS-1551331

PATIENT
  Sex: Female

DRUGS (10)
  1. DOXYCYCLINE HYCLATE. [Concomitant]
     Active Substance: DOXYCYCLINE HYCLATE
  2. VITAMIN D2 [Concomitant]
     Active Substance: ERGOCALCIFEROL
     Route: 065
  3. TARCEVA [Suspect]
     Active Substance: ERLOTINIB HYDROCHLORIDE
     Indication: LUNG NEOPLASM MALIGNANT
     Route: 048
     Dates: start: 20141011
  4. ALPRAZOLAM. [Concomitant]
     Active Substance: ALPRAZOLAM
  5. FLUTICASONE. [Concomitant]
     Active Substance: FLUTICASONE
  6. ETODOLAC. [Concomitant]
     Active Substance: ETODOLAC
  7. TARCEVA [Suspect]
     Active Substance: ERLOTINIB HYDROCHLORIDE
     Indication: IRON DEFICIENCY ANAEMIA
  8. GABAPENTIN. [Suspect]
     Active Substance: GABAPENTIN
     Indication: PRODUCT USED FOR UNKNOWN INDICATION
     Route: 065
  9. FOSINOPRIL [Concomitant]
     Active Substance: FOSINOPRIL
  10. LORAZEPAM. [Concomitant]
     Active Substance: LORAZEPAM

REACTIONS (13)
  - Nausea [Unknown]
  - Faeces soft [Unknown]
  - Rash [Unknown]
  - Neuropathy peripheral [Not Recovered/Not Resolved]
  - Paraesthesia [Unknown]
  - Diarrhoea [Unknown]
  - Somnolence [Unknown]
  - Muscle spasms [Unknown]
  - Gastric disorder [Unknown]
  - Dermatitis acneiform [Unknown]
  - Abdominal pain upper [Unknown]
  - Pruritus [Unknown]
  - Discomfort [Unknown]
